FAERS Safety Report 5326131-X (Version None)
Quarter: 2007Q2

REPORT INFORMATION
  Report Type: 
  Country: None (occurrence: None)
  Receive Date: 20070510
  Receipt Date: 20070501
  Transmission Date: 20071010
  Serious: Yes (Hospitalization)
  Sender: FDA-Public Use
  Company Number: 2007BI005600

PATIENT
  Age: 56 Year
  Sex: Female

DRUGS (30)
  1. AVONEX [Suspect]
     Indication: MULTIPLE SCLEROSIS
     Dosage: 30 UG;QW;IM
     Route: 030
     Dates: start: 20030825
  2. AVONEX [Suspect]
     Indication: MULTIPLE SCLEROSIS
     Dosage: 30 UG;QW;IM
     Route: 030
     Dates: start: 20060501
  3. VALTREX [Concomitant]
  4. VIGAMOX [Concomitant]
  5. LAMICTAL [Concomitant]
  6. PROVIGIL [Concomitant]
  7. BACLOFEN [Concomitant]
  8. NEURONTIN [Concomitant]
  9. CYMBALTA [Concomitant]
  10. OS-CAL +D [Concomitant]
  11. LIPITOR [Concomitant]
  12. MELOXICAM [Concomitant]
  13. CENTRUM SILVER [Concomitant]
  14. FAMOTIDINE [Concomitant]
  15. NEXIUM [Concomitant]
  16. ACTOS [Concomitant]
  17. HYDROCHLOROTHIAZIDE [Concomitant]
  18. LOTENSIN [Concomitant]
  19. TOPROL-XL [Concomitant]
  20. DESMOPRESSIN [Concomitant]
  21. LEVOTHYROXINE SODIUM [Concomitant]
  22. ASPIRIN [Concomitant]
  23. METFORMIN HCL [Concomitant]
  24. GLIMEPIRIDE [Concomitant]
  25. AVAPRO [Concomitant]
  26. ZYRTEC [Concomitant]
  27. PLAVIX [Concomitant]
  28. VICODIN [Concomitant]
  29. LANTUS [Concomitant]
  30. REGULAR INSULIN [Concomitant]

REACTIONS (8)
  - ASTHENIA [None]
  - BALANCE DISORDER [None]
  - CARPAL TUNNEL SYNDROME [None]
  - CHEST PAIN [None]
  - EYE PAIN [None]
  - PAIN IN EXTREMITY [None]
  - SENSORY LOSS [None]
  - SLEEP APNOEA SYNDROME [None]
